FAERS Safety Report 12788567 (Version 1)
Quarter: 2016Q3

REPORT INFORMATION
  Report Type: Spontaneous
  Country: US (occurrence: US)
  Receive Date: 20160928
  Receipt Date: 20160928
  Transmission Date: 20161109
  Serious: Yes (Other)
  Sender: FDA-Public Use
  Company Number: None

PATIENT
  Age: 47 Year
  Sex: Female
  Weight: 69.75 kg

DRUGS (4)
  1. ALPRAZOLAM XR 0.5MG [Suspect]
     Active Substance: ALPRAZOLAM
     Indication: ANXIETY
     Dosage: ?          QUANTITY:1 TABLET(S);?
     Route: 048
  2. LORATADINE. [Concomitant]
     Active Substance: LORATADINE
  3. ALPRAZOLAM XR [Concomitant]
     Active Substance: ALPRAZOLAM
  4. SERTRALINE [Concomitant]
     Active Substance: SERTRALINE HYDROCHLORIDE

REACTIONS (6)
  - Palpitations [None]
  - Product substitution issue [None]
  - Insomnia [None]
  - Panic reaction [None]
  - Anxiety [None]
  - Dyspnoea [None]

NARRATIVE: CASE EVENT DATE: 20160921
